FAERS Safety Report 6835644-0 (Version None)
Quarter: 2010Q3

REPORT INFORMATION
  Report Type: 
  Country: None (occurrence: None)
  Receive Date: 20100712
  Receipt Date: 20100712
  Transmission Date: 20110219
  Serious: No
  Sender: FDA-Public Use
  Company Number: None

PATIENT
  Age: 47 Year
  Sex: Male
  Weight: 99.7913 kg

DRUGS (1)
  1. CIPRO [Suspect]
     Indication: EPIDIDYMITIS
     Dosage: 500MG TWICE A DAY PO
     Route: 048
     Dates: start: 20100623, end: 20100701

REACTIONS (4)
  - ARTHRALGIA [None]
  - DIARRHOEA HAEMORRHAGIC [None]
  - PARAESTHESIA [None]
  - TENDON PAIN [None]
